FAERS Safety Report 17430091 (Version 3)
Quarter: 2020Q3

REPORT INFORMATION
  Report Type: Spontaneous
  Country: US (occurrence: US)
  Receive Date: 20200218
  Receipt Date: 20200722
  Transmission Date: 20201102
  Serious: No
  Sender: FDA-Public Use
  Company Number: US-PFIZER INC-2020067650

PATIENT
  Age: 76 Year
  Sex: Female

DRUGS (1)
  1. LYRICA [Suspect]
     Active Substance: PREGABALIN
     Indication: POLYMYALGIA RHEUMATICA
     Dosage: 75 MG, 1X/DAY
     Route: 048

REACTIONS (6)
  - Product use in unapproved indication [Unknown]
  - Withdrawal syndrome [Unknown]
  - Panic reaction [Unknown]
  - Dizziness [Unknown]
  - Pruritus [Unknown]
  - Off label use [Unknown]
